FAERS Safety Report 14148331 (Version 2)
Quarter: 2018Q1

REPORT INFORMATION
  Report Type: Spontaneous
  Country: US (occurrence: US)
  Receive Date: 20171101
  Receipt Date: 20180125
  Transmission Date: 20180508
  Serious: Yes (Hospitalization)
  Sender: FDA-Public Use
  Company Number: US-INCYTE CORPORATION-2017IN009317

PATIENT

DRUGS (3)
  1. JAKAFI [Suspect]
     Active Substance: RUXOLITINIB
     Indication: MYELOFIBROSIS
     Dosage: 10 MG, 2 TABLETS BID
     Route: 048
     Dates: start: 20170414
  2. JAKAFI [Suspect]
     Active Substance: RUXOLITINIB
     Dosage: 15 MG, BID
  3. EXJADE [Suspect]
     Active Substance: DEFERASIROX
     Dosage: UNK
     Dates: start: 201709, end: 20171220

REACTIONS (3)
  - Gastrointestinal disorder [Unknown]
  - Ulcer [Unknown]
  - Abdominal pain [Unknown]

NARRATIVE: CASE EVENT DATE: 20171006
